FAERS Safety Report 7761301 (Version 4)
Quarter: 2012Q4

REPORT INFORMATION
  Report Type: 
  Country: US (occurrence: US)
  Receive Date: 20110114
  Receipt Date: 20121025
  Transmission Date: 20130627
  Serious: Yes (Other)
  Sender: FDA-Public Use
  Company Number: US-US-EMD SERONO, INC.-7026858

PATIENT
  Sex: Female
  Weight: 73 kg

DRUGS (9)
  1. REBIF [Suspect]
     Indication: RELAPSING-REMITTING MULTIPLE SCLEROSIS
     Route: 058
     Dates: start: 201001, end: 20100611
  2. FOSAMAX [Concomitant]
     Indication: OSTEOPOROSIS
  3. PROTONIX [Concomitant]
     Indication: GASTROOESOPHAGEAL REFLUX DISEASE
  4. LIPITOR [Concomitant]
     Indication: DYSLIPIDAEMIA
  5. CALCIUM PLUS VITAMIN D [Concomitant]
     Indication: OSTEOPOROSIS
  6. MULTIVIVTAMIN [Concomitant]
     Indication: SUPPLEMENTATION THERAPY
  7. COD LIVER OIL [Concomitant]
     Indication: SUPPLEMENTATION THERAPY
  8. ASTELIN NASAL SPRAY [Concomitant]
     Indication: RHINITIS
     Route: 045
  9. TRIPLE FLEX [Concomitant]
     Indication: SUPPLEMENTATION THERAPY

REACTIONS (1)
  - Myelodysplastic syndrome [Not Recovered/Not Resolved]
